FAERS Safety Report 7844225-1 (Version None)
Quarter: 2011Q4

REPORT INFORMATION
  Report Type: 
  Country: None (occurrence: None)
  Receive Date: 20111025
  Receipt Date: 20111011
  Transmission Date: 20120403
  Serious: Yes (Other)
  Sender: FDA-Public Use
  Company Number: US-ELI_LILLY_AND_COMPANY-US201010001377

PATIENT
  Age: 78 Year
  Sex: Female

DRUGS (7)
  1. FORTEO [Suspect]
     Dosage: 20 UG, QD
     Dates: start: 20110203
  2. FORTEO [Suspect]
     Dosage: 20 UG, QD
  3. FORTEO [Suspect]
     Dosage: 20 UG, QD
  4. FORTEO [Suspect]
     Indication: OSTEOPOROSIS
     Dosage: 20 UG, DAILY (1/D)
     Dates: start: 20101001
  5. FORTEO [Suspect]
     Dosage: 20 UG, QD
  6. FORTEO [Suspect]
     Dosage: 20 UG, QD
  7. FORTEO [Suspect]
     Dosage: 20 UG, QD

REACTIONS (10)
  - HIP ARTHROPLASTY [None]
  - ONYCHOCLASIS [None]
  - FEELING ABNORMAL [None]
  - COUGH [None]
  - BLOOD PRESSURE INCREASED [None]
  - ARTHRALGIA [None]
  - NAIL DISORDER [None]
  - BACK PAIN [None]
  - BACK DISORDER [None]
  - PNEUMONIA [None]
